FAERS Safety Report 8277104-9 (Version None)
Quarter: 2012Q2

REPORT INFORMATION
  Report Type: 
  Country: None (occurrence: None)
  Receive Date: 20120412
  Receipt Date: 20120405
  Transmission Date: 20120825
  Serious: Yes (Other)
  Sender: FDA-Public Use
  Company Number: US-FRI-1000024540

PATIENT
  Age: 41 Year
  Sex: Female

DRUGS (8)
  1. TRAZODONE HCL [Concomitant]
     Indication: DEPRESSION
  2. ABILIFY [Concomitant]
     Indication: DEPRESSION
  3. VIIBRYD [Suspect]
     Dosage: 20 MG
     Route: 048
     Dates: start: 20110906, end: 20110912
  4. LAMICTAL [Concomitant]
     Indication: BIPOLAR DISORDER
  5. NAPROXEN [Concomitant]
  6. VIIBRYD [Suspect]
     Indication: DEPRESSION
     Dosage: 10 MG
     Route: 048
     Dates: start: 20110830, end: 20110905
  7. VIIBRYD [Suspect]
     Dosage: 40 MG
     Route: 048
     Dates: start: 20110913, end: 20111001
  8. ALLEGRA [Concomitant]
     Indication: SEASONAL ALLERGY

REACTIONS (5)
  - CRYING [None]
  - DIZZINESS [None]
  - SUICIDAL IDEATION [None]
  - MIGRAINE [None]
  - DRUG INEFFECTIVE [None]
